FAERS Safety Report 13766302 (Version 1)
Quarter: 2017Q3

REPORT INFORMATION
  Report Type: Spontaneous
  Country: US (occurrence: US)
  Receive Date: 20170719
  Receipt Date: 20170719
  Transmission Date: 20171127
  Serious: Yes (Hospitalization, Other)
  Sender: FDA-Public Use
  Company Number: US-B.I. PHARMACEUTICALS,INC./RIDGEFIELD-2017-BI-039543

PATIENT
  Age: 84 Year
  Sex: Male

DRUGS (5)
  1. DOCETAXEL. [Concomitant]
     Active Substance: DOCETAXEL
     Indication: HORMONE-REFRACTORY PROSTATE CANCER
     Route: 065
  2. PRADAXA [Suspect]
     Active Substance: DABIGATRAN ETEXILATE MESYLATE
     Indication: ATRIAL FIBRILLATION
     Route: 065
  3. ENZLUTAMIDE [Concomitant]
     Indication: HORMONE-REFRACTORY PROSTATE CANCER
     Route: 065
  4. ENZLUTAMIDE [Concomitant]
     Indication: METASTASES TO BONE
  5. DOCETAXEL. [Concomitant]
     Active Substance: DOCETAXEL
     Indication: METASTASES TO BONE

REACTIONS (5)
  - Acute kidney injury [Unknown]
  - Pericardial haemorrhage [Recovered/Resolved]
  - Cardiogenic shock [Unknown]
  - Febrile neutropenia [Unknown]
  - Multiple organ dysfunction syndrome [Recovered/Resolved]
